FAERS Safety Report 25228741 (Version 3)
Quarter: 2025Q2

REPORT INFORMATION
  Report Type: Report from Study
  Country: CA (occurrence: CA)
  Receive Date: 20250423
  Receipt Date: 20250520
  Transmission Date: 20250716
  Serious: Yes (Hospitalization, Other)
  Sender: TAKEDA
  Company Number: CA-TAKEDA-2025TUS039304

PATIENT
  Sex: Female

DRUGS (6)
  1. VEDOLIZUMAB [Suspect]
     Active Substance: VEDOLIZUMAB
     Indication: Crohn^s disease
  2. VEDOLIZUMAB [Suspect]
     Active Substance: VEDOLIZUMAB
     Dosage: 300 MILLIGRAM, Q4WEEKS
     Dates: start: 20190612
  3. VEDOLIZUMAB [Suspect]
     Active Substance: VEDOLIZUMAB
     Dosage: 300 MILLIGRAM, Q4WEEKS
     Dates: end: 20250417
  4. PREDNISONE [Concomitant]
     Active Substance: PREDNISONE
  5. MERCAPTOPURINE [Concomitant]
     Active Substance: MERCAPTOPURINE
  6. NEXPLANON [Concomitant]
     Active Substance: ETONOGESTREL

REACTIONS (3)
  - Small intestinal obstruction [Recovering/Resolving]
  - Crohn^s disease [Recovering/Resolving]
  - Cholelithiasis [Recovering/Resolving]
